FAERS Safety Report 13142846 (Version 1)
Quarter: 2017Q1

REPORT INFORMATION
  Report Type: Spontaneous
  Country: CN (occurrence: CN)
  Receive Date: 20170123
  Receipt Date: 20170123
  Transmission Date: 20170428
  Serious: Yes (Hospitalization)
  Sender: FDA-Public Use
  Company Number: CN-ABBVIE-17P-035-1850475-00

PATIENT
  Age: 48 Year
  Sex: Male

DRUGS (4)
  1. DEPAKINE CHRONO [Suspect]
     Active Substance: VALPROATE SODIUM
     Indication: HAEMORRHAGE INTRACRANIAL
     Dosage: TABLET, EXTENDED RELEASE
     Route: 048
     Dates: start: 20161009, end: 20161031
  2. ORYZANOL [Suspect]
     Active Substance: GAMMA ORYZANOL
     Indication: HAEMORRHAGE INTRACRANIAL
     Route: 048
     Dates: start: 20161009, end: 20161031
  3. VANCOMYCIN HYDROCHLORIDE. [Suspect]
     Active Substance: VANCOMYCIN HYDROCHLORIDE
     Indication: ENDOCARDITIS
     Dosage: 5 MILLIUNITS
     Route: 041
     Dates: start: 20161009, end: 20161025
  4. PIPERAZINE [Suspect]
     Active Substance: PIPERAZINE
     Indication: HAEMORRHAGE INTRACRANIAL
     Route: 048
     Dates: start: 20161009, end: 20161031

REACTIONS (3)
  - Swelling face [Recovered/Resolved]
  - Rash [Recovered/Resolved]
  - Pruritus [Recovering/Resolving]

NARRATIVE: CASE EVENT DATE: 20161021
